FAERS Safety Report 6039409-1 (Version None)
Quarter: 2009Q1

REPORT INFORMATION
  Report Type: 
  Country: None (occurrence: None)
  Receive Date: 20090115
  Receipt Date: 20090109
  Transmission Date: 20090719
  Serious: Yes (Other)
  Sender: FDA-Public Use
  Company Number: US-MERCK-0811USA01295

PATIENT
  Age: 55 Year
  Sex: Male
  Weight: 99 kg

DRUGS (5)
  1. ZETIA [Suspect]
     Indication: HYPERLIPIDAEMIA
     Route: 048
     Dates: start: 20021121
  2. CARDURA [Concomitant]
     Route: 065
  3. XANAX [Concomitant]
     Route: 065
  4. VICODIN [Concomitant]
     Route: 065
  5. CELEBREX [Concomitant]
     Route: 065

REACTIONS (16)
  - ANGINA PECTORIS [None]
  - ATRIAL FLUTTER [None]
  - CHEST PAIN [None]
  - CORONARY ARTERY DISEASE [None]
  - DIASTOLIC DYSFUNCTION [None]
  - DIZZINESS [None]
  - ESSENTIAL HYPERTENSION [None]
  - HYPERTENSIVE HEART DISEASE [None]
  - MITRAL VALVE INCOMPETENCE [None]
  - MYALGIA [None]
  - MYOCARDIAL INFARCTION [None]
  - PALPITATIONS [None]
  - SUPRAVENTRICULAR TACHYCARDIA [None]
  - TRICUSPID VALVE INCOMPETENCE [None]
  - VASCULAR GRAFT [None]
  - VENTRICULAR TACHYCARDIA [None]
